FAERS Safety Report 7645074-X (Version None)
Quarter: 2011Q3

REPORT INFORMATION
  Report Type: 
  Country: None (occurrence: None)
  Receive Date: 20110729
  Receipt Date: 20110721
  Transmission Date: 20111222
  Serious: Yes (Other)
  Sender: FDA-Public Use
  Company Number: JP-ASTRAZENECA-2011SE43375

PATIENT
  Age: 22772 Day
  Sex: Female

DRUGS (13)
  1. SEROQUEL [Suspect]
     Route: 048
     Dates: start: 20110712, end: 20110719
  2. DEPAKENE [Suspect]
     Route: 048
     Dates: start: 20070809, end: 20110711
  3. BLONANSERIN [Concomitant]
     Indication: SCHIZOPHRENIA
     Route: 048
     Dates: start: 20090404
  4. PURSENNID [Concomitant]
     Indication: CONSTIPATION
     Route: 048
     Dates: start: 20070824
  5. DEPAKENE [Suspect]
     Route: 048
     Dates: start: 20110712
  6. SEROQUEL [Suspect]
     Indication: SCHIZOPHRENIA
     Route: 048
     Dates: start: 20071121, end: 20110711
  7. DEPAKENE [Suspect]
     Indication: SCHIZOPHRENIA
     Route: 048
     Dates: end: 20070808
  8. RISPERDAL CONSTA [Concomitant]
     Indication: SCHIZOPHRENIA
     Dates: start: 20091111
  9. RISPERDAL [Concomitant]
     Indication: SCHIZOPHRENIA
     Route: 048
  10. TASMOLIN [Concomitant]
     Indication: PARKINSONISM
     Route: 048
  11. GASMOTIN [Concomitant]
     Indication: CONSTIPATION
     Route: 048
  12. MAGNESIUM OXIDE [Concomitant]
     Indication: CONSTIPATION
     Route: 048
  13. BARNETIL [Concomitant]
     Indication: SCHIZOPHRENIA
     Route: 048

REACTIONS (1)
  - PANCYTOPENIA [None]
